FAERS Safety Report 15829381 (Version 1)
Quarter: 2019Q1

REPORT INFORMATION
  Report Type: Spontaneous
  Country: US (occurrence: US)
  Receive Date: 20190115
  Receipt Date: 20190115
  Transmission Date: 20190417
  Serious: No
  Sender: FDA-Public Use
  Company Number: US-ALLERGAN-1841921US

PATIENT
  Sex: Female

DRUGS (4)
  1. LIFITEGRAST [Concomitant]
     Active Substance: LIFITEGRAST
     Indication: DRY EYE
     Route: 047
  2. RESTASIS [Suspect]
     Active Substance: CYCLOSPORINE
     Indication: DRY EYE
     Dosage: 2 GTT, BID
     Route: 047
     Dates: start: 201808
  3. MANY OTHER DRY EYE DROPS [Concomitant]
  4. BLOOD TEARS [Concomitant]
     Indication: DRY EYE

REACTIONS (3)
  - Eye pain [Unknown]
  - Eye irritation [Unknown]
  - Product storage error [Unknown]

NARRATIVE: CASE EVENT DATE: 201808
